FAERS Safety Report 11315647 (Version 11)
Quarter: 2017Q3

REPORT INFORMATION
  Report Type: Report from Study
  Country: FR (occurrence: FR)
  Receive Date: 20150728
  Receipt Date: 20170802
  Transmission Date: 20171127
  Serious: Yes (Other)
  Sender: FDA-Public Use
  Company Number: FR-ROCHE-1592647

PATIENT
  Age: 73 Year
  Sex: Female

DRUGS (7)
  1. RANIBIZUMAB. [Suspect]
     Active Substance: RANIBIZUMAB
     Indication: VISUAL IMPAIRMENT
     Dosage: 0.5 MG, (FIRST LEFT EYE INJECTION)
     Route: 050
     Dates: start: 20141125
  2. BRINZOLAMIDE/TIMOLOL MALEATE [Suspect]
     Active Substance: BRINZOLAMIDE\TIMOLOL MALEATE
     Indication: OCULAR HYPERTENSION
     Dosage: AT A DOSE OF 1 DF
     Route: 065
     Dates: start: 20141110
  3. GANFORT [Concomitant]
     Active Substance: BIMATOPROST\TIMOLOL
     Indication: OCULAR HYPERTENSION
     Dosage: UNK
     Route: 065
     Dates: end: 20160122
  4. RANIBIZUMAB. [Suspect]
     Active Substance: RANIBIZUMAB
     Indication: RETINAL VEIN OCCLUSION
     Dosage: LEFT EYE
     Route: 050
     Dates: start: 20141223
  5. RANIBIZUMAB. [Suspect]
     Active Substance: RANIBIZUMAB
     Dosage: LAST DOSE PRIOR TO ONSET OF THE EVENT
     Route: 050
     Dates: start: 20150120, end: 20150120
  6. LERCAN [Suspect]
     Active Substance: LERCANIDIPINE
     Indication: PRODUCT USED FOR UNKNOWN INDICATION
     Route: 065
     Dates: end: 20160122
  7. RANIBIZUMAB. [Suspect]
     Active Substance: RANIBIZUMAB
     Dosage: 0.5 MG, UNK (LEFT EYE)
     Route: 050
     Dates: start: 20150320

REACTIONS (10)
  - Eye pruritus [Unknown]
  - Malaise [Recovered/Resolved]
  - Back pain [Unknown]
  - Eye colour change [Unknown]
  - Hypertension [Recovering/Resolving]
  - Facial bones fracture [Recovered/Resolved]
  - Drug intolerance [Unknown]
  - Fall [Unknown]
  - Foreign body sensation in eyes [Recovered/Resolved]
  - Dry eye [Unknown]

NARRATIVE: CASE EVENT DATE: 2015
